FAERS Safety Report 18177115 (Version 2)
Quarter: 2021Q1

REPORT INFORMATION
  Report Type: Spontaneous
  Country: US (occurrence: US)
  Receive Date: 20200820
  Receipt Date: 20210318
  Transmission Date: 20210419
  Serious: Yes (Hospitalization, Other)
  Sender: FDA-Public Use
  Company Number: US-ASTRAZENECA-2020SF04374

PATIENT
  Age: 46 Year
  Sex: Female
  Weight: 137.9 kg

DRUGS (49)
  1. ALLOPURINOL. [Concomitant]
     Active Substance: ALLOPURINOL
     Indication: GOUT
     Dates: start: 2018
  2. TRAMADOL. [Concomitant]
     Active Substance: TRAMADOL
     Dates: start: 1999, end: 2017
  3. HYDROCODONE [Concomitant]
     Active Substance: HYDROCODONE
     Dates: start: 1999, end: 2017
  4. NAPROXEN. [Concomitant]
     Active Substance: NAPROXEN
     Dates: start: 1999, end: 2017
  5. DIPHENHYDRAMINE. [Concomitant]
     Active Substance: DIPHENHYDRAMINE
     Dates: start: 1999, end: 2017
  6. TOPIRAMATE. [Concomitant]
     Active Substance: TOPIRAMATE
     Dates: start: 1999, end: 2017
  7. PRILOSEC OTC [Suspect]
     Active Substance: OMEPRAZOLE MAGNESIUM
     Indication: GASTROOESOPHAGEAL REFLUX DISEASE
     Route: 048
     Dates: start: 200104, end: 201801
  8. LOSARTAN. [Concomitant]
     Active Substance: LOSARTAN
     Dates: start: 1999, end: 2017
  9. AMOXICILLIN. [Concomitant]
     Active Substance: AMOXICILLIN
     Dates: start: 1999, end: 2017
  10. METOPROLOL. [Concomitant]
     Active Substance: METOPROLOL
     Dates: start: 1999, end: 2017
  11. PRILOSEC [Suspect]
     Active Substance: OMEPRAZOLE MAGNESIUM
     Indication: GASTROOESOPHAGEAL REFLUX DISEASE
     Route: 048
     Dates: start: 2001, end: 2018
  12. PROTONIX [Suspect]
     Active Substance: PANTOPRAZOLE SODIUM
     Indication: GASTROOESOPHAGEAL REFLUX DISEASE
     Dosage: GENERIC
     Route: 065
     Dates: end: 2017
  13. MYLANTA [Concomitant]
     Active Substance: ALUMINUM HYDROXIDE\DIMETHICONE\MAGNESIUM HYDROXIDE
     Dates: start: 1999, end: 2017
  14. ONDASETRON [Concomitant]
     Active Substance: ONDANSETRON
     Dates: start: 1999, end: 2017
  15. ALPRAZOLAM. [Concomitant]
     Active Substance: ALPRAZOLAM
     Dates: start: 1999, end: 2017
  16. COLCHICINE. [Concomitant]
     Active Substance: COLCHICINE
     Dates: start: 1999, end: 2017
  17. PROCTOSONE [Concomitant]
     Active Substance: DIBUCAINE\ESCULIN\HYDROCORTISONE\NEOMYCIN
     Dates: start: 1999, end: 2017
  18. ALLOPURINOL. [Concomitant]
     Active Substance: ALLOPURINOL
     Dates: start: 1999, end: 2017
  19. NEXIUM 24HR [Suspect]
     Active Substance: ESOMEPRAZOLE MAGNESIUM
     Indication: GASTROOESOPHAGEAL REFLUX DISEASE
     Route: 048
     Dates: start: 200104, end: 201801
  20. PRILOSEC [Suspect]
     Active Substance: OMEPRAZOLE MAGNESIUM
     Indication: GASTROOESOPHAGEAL REFLUX DISEASE
     Dosage: GENERIC
     Route: 065
     Dates: end: 2018
  21. VENLAFAXINE [Concomitant]
     Active Substance: VENLAFAXINE HYDROCHLORIDE
     Dates: start: 1999, end: 2017
  22. IMITREX [Concomitant]
     Active Substance: SUMATRIPTAN SUCCINATE
     Dates: start: 1999, end: 2017
  23. ARIPIPRAZOLE. [Concomitant]
     Active Substance: ARIPIPRAZOLE
     Dates: start: 1999, end: 2017
  24. NEXIUM [Suspect]
     Active Substance: ESOMEPRAZOLE MAGNESIUM
     Indication: GASTROOESOPHAGEAL REFLUX DISEASE
     Route: 048
     Dates: start: 2001, end: 2018
  25. NEXIUM 24HR [Suspect]
     Active Substance: ESOMEPRAZOLE MAGNESIUM
     Indication: GASTROOESOPHAGEAL REFLUX DISEASE
     Route: 048
     Dates: start: 2014, end: 2018
  26. CHLORHEXIDINE [Concomitant]
     Active Substance: CHLORHEXIDINE
     Dates: start: 1999, end: 2017
  27. SIMVASTATIN. [Concomitant]
     Active Substance: SIMVASTATIN
     Dates: start: 1999, end: 2017
  28. ATENOLOL. [Concomitant]
     Active Substance: ATENOLOL
     Dates: start: 1999, end: 2017
  29. SUCRALFATE. [Concomitant]
     Active Substance: SUCRALFATE
     Dates: start: 1999, end: 2017
  30. PEPTO?BISMOL [Concomitant]
     Active Substance: BISMUTH SUBSALICYLATE
     Dates: start: 1999, end: 2017
  31. TUMS [Concomitant]
     Active Substance: CALCIUM CARBONATE
     Dates: start: 1999, end: 2017
  32. VENLAFAXINE [Concomitant]
     Active Substance: VENLAFAXINE HYDROCHLORIDE
     Dates: start: 1999, end: 2017
  33. METHOCARBAMOL. [Concomitant]
     Active Substance: METHOCARBAMOL
     Dates: start: 1999, end: 2017
  34. CYMBALTA [Concomitant]
     Active Substance: DULOXETINE HYDROCHLORIDE
     Dates: start: 1999, end: 2017
  35. ESCITALOPRAM [Concomitant]
     Active Substance: ESCITALOPRAM OXALATE
     Dates: start: 1999, end: 2017
  36. CEFTRIAXONE. [Concomitant]
     Active Substance: CEFTRIAXONE
     Dates: start: 1999, end: 2017
  37. NEXIUM [Suspect]
     Active Substance: ESOMEPRAZOLE MAGNESIUM
     Indication: GASTROOESOPHAGEAL REFLUX DISEASE
     Route: 048
     Dates: start: 200104, end: 201801
  38. PRILOSEC OTC [Suspect]
     Active Substance: OMEPRAZOLE MAGNESIUM
     Indication: GASTROOESOPHAGEAL REFLUX DISEASE
     Route: 048
     Dates: start: 2003, end: 2018
  39. PROTONIX [Suspect]
     Active Substance: PANTOPRAZOLE SODIUM
     Indication: GASTROOESOPHAGEAL REFLUX DISEASE
     Route: 065
     Dates: start: 2001, end: 2018
  40. AMLODIPINE [Concomitant]
     Active Substance: AMLODIPINE BESYLATE
     Dates: start: 1999, end: 2017
  41. EFFEXOR [Concomitant]
     Active Substance: VENLAFAXINE HYDROCHLORIDE
     Dates: start: 1999, end: 2017
  42. PENICILLIN [Concomitant]
     Active Substance: PENICILLIN
     Dates: start: 1999, end: 2017
  43. ATOVASTATIN [Concomitant]
     Active Substance: ATORVASTATIN
     Dates: start: 1999, end: 2017
  44. OXYCODONE [Concomitant]
     Active Substance: OXYCODONE
     Dates: start: 1999, end: 2017
  45. CLONAZEPAM. [Concomitant]
     Active Substance: CLONAZEPAM
     Dates: start: 1999, end: 2017
  46. DULERA [Concomitant]
     Active Substance: FORMOTEROL FUMARATE DIHYDRATE\MOMETASONE FUROATE
     Dates: start: 1999, end: 2017
  47. FERROUS SULFATE. [Concomitant]
     Active Substance: FERROUS SULFATE
     Dates: start: 1999, end: 2017
  48. LEXAPRO [Concomitant]
     Active Substance: ESCITALOPRAM OXALATE
     Dates: start: 1999, end: 2017
  49. POTASSIUM CHLORIDE. [Concomitant]
     Active Substance: POTASSIUM CHLORIDE
     Dates: start: 1999, end: 2017

REACTIONS (3)
  - Chronic kidney disease [Not Recovered/Not Resolved]
  - Acute kidney injury [Not Recovered/Not Resolved]
  - Renal failure [Unknown]

NARRATIVE: CASE EVENT DATE: 2010
